FAERS Safety Report 7652334-5 (Version None)
Quarter: 2011Q3

REPORT INFORMATION
  Report Type: 
  Country: None (occurrence: None)
  Receive Date: 20110722
  Receipt Date: 20110324
  Transmission Date: 20111222
  Serious: Yes (Hospitalization)
  Sender: FDA-Public Use
  Company Number: UTC-005901

PATIENT
  Age: 53 Year
  Sex: Female
  Weight: 59 kg

DRUGS (2)
  1. REVATIO [Concomitant]
  2. REMODULIN [Suspect]
     Dosage: 4.32 UG/KG (0.003 UG/KG, 1 IN 1 MIN), INTRAVENOUS
     Route: 042
     Dates: start: 20110119

REACTIONS (1)
  - SEPSIS [None]
